FAERS Safety Report 11719515 (Version 1)
Quarter: 2015Q4

REPORT INFORMATION
  Report Type: Spontaneous
  Country: US (occurrence: None)
  Receive Date: 20151110
  Receipt Date: 20151110
  Transmission Date: 20160304
  Serious: Yes (Other)
  Sender: FDA-Public Use
  Company Number: US-MDT-ADR-2015-02108

PATIENT
  Age: 47 Year
  Sex: Female

DRUGS (2)
  1. COMPOUNDED BACLOFEN INTRATHECAL 900.9MCG/ML [Suspect]
     Active Substance: BACLOFEN
     Indication: MUSCLE SPASTICITY
     Dosage: 239MCG/DAY
  2. SUFENTA [Suspect]
     Active Substance: SUFENTANIL CITRATE
     Dosage: 1.3315MCG/DAY

REACTIONS (2)
  - Purulent discharge [None]
  - Medical device site infection [None]
